FAERS Safety Report 9798566 (Version 1)
Quarter: 2014Q1

REPORT INFORMATION
  Report Type: Spontaneous
  Country: US (occurrence: None)
  Receive Date: 20140102
  Receipt Date: 20140102
  Transmission Date: 20141002
  Serious: Yes (Life-Threatening, Hospitalization)
  Sender: FDA-Public Use
  Company Number: None

PATIENT
  Age: 49 Year
  Sex: Female

DRUGS (7)
  1. AFINITOR [Suspect]
     Indication: BREAST CANCER
     Route: 048
     Dates: start: 20130816, end: 20131231
  2. GABAPENTIN [Concomitant]
  3. MORPHINE SULFATE ER [Concomitant]
  4. HYDROMORPHONE [Concomitant]
  5. EXEMESTANE [Concomitant]
  6. IBUPROFEN [Concomitant]
  7. HYDROCODONE [Concomitant]

REACTIONS (2)
  - Gastric perforation [None]
  - Gastric haemorrhage [None]
